FAERS Safety Report 7699107-5 (Version None)
Quarter: 2011Q3

REPORT INFORMATION
  Report Type: 
  Country: None (occurrence: None)
  Receive Date: 20110819
  Receipt Date: 20110817
  Transmission Date: 20111222
  Serious: Yes (Death)
  Sender: FDA-Public Use
  Company Number: US-ABBOTT-11P-163-0841985-00

PATIENT
  Sex: Male

DRUGS (1)
  1. CREON [Suspect]
     Indication: PANCREATIC CARCINOMA
     Dosage: THREE TIMES PER DAY BEFORE MEALS
     Dates: start: 20100401, end: 20110701

REACTIONS (1)
  - PANCREATIC CARCINOMA RECURRENT [None]
